FAERS Safety Report 7179782-4 (Version None)
Quarter: 2010Q4

REPORT INFORMATION
  Report Type: 
  Country: None (occurrence: None)
  Receive Date: 20101221
  Receipt Date: 20101216
  Transmission Date: 20110411
  Serious: Yes (Hospitalization)
  Sender: FDA-Public Use
  Company Number: DK-ROCHE-748830

PATIENT
  Sex: Male

DRUGS (2)
  1. ROACTEMRA [Suspect]
     Route: 042
     Dates: start: 20101102, end: 20101203
  2. PREDNISOLONE [Concomitant]
     Dates: start: 20100702, end: 20101103

REACTIONS (2)
  - EXFOLIATIVE RASH [None]
  - URTICARIA [None]
